FAERS Safety Report 7364528-7 (Version None)
Quarter: 2011Q1

REPORT INFORMATION
  Report Type: 
  Country: None (occurrence: None)
  Receive Date: 20110321
  Receipt Date: 20110308
  Transmission Date: 20110831
  Serious: Yes (Hospitalization, Other)
  Sender: FDA-Public Use
  Company Number: US-MERCK-0911USA04320

PATIENT
  Age: 70 Year
  Sex: Female

DRUGS (2)
  1. FOSAMAX [Suspect]
     Indication: OSTEOPOROSIS
     Route: 048
     Dates: start: 19950101, end: 20040701
  2. FOSAMAX [Suspect]
     Indication: OSTEOARTHRITIS
     Route: 048
     Dates: start: 19950101, end: 20040701

REACTIONS (32)
  - OXYGEN SATURATION DECREASED [None]
  - TOOTH LOSS [None]
  - GLOSSITIS [None]
  - HYPOTHYROIDISM [None]
  - HYPOAESTHESIA TEETH [None]
  - WOUND DECOMPOSITION [None]
  - STOMATITIS [None]
  - JAW DISORDER [None]
  - OSTEOMYELITIS [None]
  - ABSCESS ORAL [None]
  - ANXIETY [None]
  - ORAL PAIN [None]
  - JAW CYST [None]
  - ASTHMA [None]
  - OSTEONECROSIS OF JAW [None]
  - DEPRESSION [None]
  - TOOTH ABSCESS [None]
  - ORAL INFECTION [None]
  - BLOOD PRESSURE DECREASED [None]
  - IMPAIRED HEALING [None]
  - DIZZINESS [None]
  - NEUROMA [None]
  - DENTAL CARIES [None]
  - CAROTID ARTERY DISEASE [None]
  - DEHYDRATION [None]
  - CEREBROVASCULAR ACCIDENT [None]
  - DENTAL FISTULA [None]
  - EAR PAIN [None]
  - TOOTH DISORDER [None]
  - DYSPHAGIA [None]
  - URTICARIA [None]
  - DYSLIPIDAEMIA [None]
